FAERS Safety Report 12762604 (Version 6)
Quarter: 2017Q1

REPORT INFORMATION
  Report Type: Report from Study
  Country: US (occurrence: US)
  Receive Date: 20160920
  Receipt Date: 20170224
  Transmission Date: 20170428
  Serious: Yes (Other)
  Sender: FDA-Public Use
  Company Number: US-BAYER-2016-159512

PATIENT
  Age: 73 Year
  Sex: Female
  Weight: 85.26 kg

DRUGS (9)
  1. STIVARGA [Suspect]
     Active Substance: REGORAFENIB
     Indication: COLORECTAL CANCER
     Dosage: 120 MG, QD
     Route: 048
     Dates: start: 20160901
  2. STIVARGA [Suspect]
     Active Substance: REGORAFENIB
     Indication: RECTOSIGMOID CANCER
     Dosage: 160 MG, QD, 21 DAYS
     Route: 048
     Dates: start: 20160808, end: 20160831
  3. NEURONTIN [Concomitant]
     Active Substance: GABAPENTIN
  4. ONGLYZA [Concomitant]
     Active Substance: SAXAGLIPTIN HYDROCHLORIDE
  5. LIPITOR [Concomitant]
     Active Substance: ATORVASTATIN CALCIUM
  6. TRILEPTAL [Concomitant]
     Active Substance: OXCARBAZEPINE
  7. NEXIUM [Concomitant]
     Active Substance: ESOMEPRAZOLE MAGNESIUM
  8. METFORMIN HYDROCHLORIDE. [Concomitant]
     Active Substance: METFORMIN HYDROCHLORIDE
  9. MAGNESIUM [Concomitant]
     Active Substance: MAGNESIUM

REACTIONS (17)
  - Constipation [Not Recovered/Not Resolved]
  - Influenza [None]
  - Rectosigmoid cancer [None]
  - Fatigue [Not Recovered/Not Resolved]
  - Asthenia [None]
  - Nausea [None]
  - Diarrhoea [None]
  - Rash macular [None]
  - Asthenia [None]
  - Back pain [Unknown]
  - Vomiting [None]
  - Dry skin [None]
  - Constipation [None]
  - Fluid replacement [None]
  - Dysphonia [Unknown]
  - Pain in extremity [Unknown]
  - Gastrointestinal motility disorder [None]

NARRATIVE: CASE EVENT DATE: 2016
